FAERS Safety Report 5098624-4 (Version None)
Quarter: 2006Q3

REPORT INFORMATION
  Report Type: 
  Country: None (occurrence: None)
  Receive Date: 20060905
  Receipt Date: 20060824
  Transmission Date: 20061208
  Serious: Yes (Other)
  Sender: FDA-Public Use
  Company Number: HQWYE978625AUG06

PATIENT
  Age: 41 Year
  Sex: Female

DRUGS (6)
  1. EFFEXOR XR [Suspect]
     Indication: ANXIETY
     Dosage: 75 MG 2X PER 1 DAY, ORAL
     Route: 048
  2. EFFEXOR XR [Suspect]
     Indication: DEPRESSION
     Dosage: 75 MG 2X PER 1 DAY, ORAL
     Route: 048
  3. ALBUTEROL [Concomitant]
  4. IPRATRIUM BROMIDE (IPRATROPIUM BROMIDE) [Concomitant]
  5. ATIVAN [Concomitant]
  6. ADVAIR (FLUTICASONE PROPINOATE/SALEMTEROL XINAFOATE) [Concomitant]

REACTIONS (6)
  - DYSPHEMIA [None]
  - HEAD TITUBATION [None]
  - MULTIPLE SCLEROSIS [None]
  - SPEECH DISORDER [None]
  - THERAPY NON-RESPONDER [None]
  - TREMOR [None]
